FAERS Safety Report 9014002 (Version 1)
Quarter: 2013Q1

REPORT INFORMATION
  Report Type: Spontaneous
  Country: US (occurrence: None)
  Receive Date: 20130109
  Receipt Date: 20130109
  Transmission Date: 20140127
  Serious: No
  Sender: FDA-Public Use
  Company Number: None

PATIENT
  Age: 73 Year
  Sex: Male
  Weight: 72.12 kg

DRUGS (1)
  1. EFFIENT [Suspect]
     Indication: ANTICOAGULANT THERAPY
     Dosage: 10 MG DAILY PO
     Route: 048
     Dates: start: 20121029, end: 20121225

REACTIONS (2)
  - Headache [None]
  - Sleep disorder due to general medical condition, insomnia type [None]
